FAERS Safety Report 5713331-X (Version None)
Quarter: 2008Q2

REPORT INFORMATION
  Report Type: 
  Country: None (occurrence: None)
  Receive Date: 20080422
  Receipt Date: 20080410
  Transmission Date: 20081010
  Serious: Yes (Death)
  Sender: FDA-Public Use
  Company Number: US-PFIZER INC-2008012986

PATIENT
  Sex: Female
  Weight: 61.2 kg

DRUGS (7)
  1. SUTENT [Suspect]
     Indication: METASTATIC RENAL CELL CARCINOMA
     Route: 048
     Dates: start: 20070517, end: 20080206
  2. LORTAB [Concomitant]
     Indication: BONE PAIN
     Route: 048
     Dates: start: 20070406, end: 20080206
  3. LASIX [Concomitant]
     Indication: OEDEMA PERIPHERAL
     Route: 048
     Dates: start: 20071213, end: 20080206
  4. K-DUR [Concomitant]
     Indication: OEDEMA PERIPHERAL
     Route: 048
     Dates: start: 20070418, end: 20080206
  5. OXYGEN [Concomitant]
     Indication: DYSPNOEA
     Route: 055
     Dates: start: 20070402, end: 20080206
  6. OXYGEN [Concomitant]
     Indication: CHRONIC OBSTRUCTIVE PULMONARY DISEASE
  7. ZOMETA [Concomitant]
     Route: 042
     Dates: start: 20070517, end: 20080124

REACTIONS (2)
  - DISEASE PROGRESSION [None]
  - METASTATIC RENAL CELL CARCINOMA [None]
